FAERS Safety Report 6677081-8 (Version None)
Quarter: 2010Q2

REPORT INFORMATION
  Report Type: 
  Country: None (occurrence: None)
  Receive Date: 20100412
  Receipt Date: 20100312
  Transmission Date: 20101027
  Serious: No
  Sender: FDA-Public Use
  Company Number: US-BAYER-201017310NA

PATIENT
  Sex: Male
  Weight: 81 kg

DRUGS (3)
  1. ULTRAVIST 240 [Suspect]
     Indication: COMPUTERISED TOMOGRAM ABDOMEN
     Dosage: TOTAL DAILY DOSE: 112 ML  UNIT DOSE: 200 ML
     Route: 042
  2. 'PCV' PACK [Concomitant]
  3. VOLUVEN [Concomitant]
     Route: 048

REACTIONS (1)
  - URTICARIA [None]
